FAERS Safety Report 15235911 (Version 1)
Quarter: 2018Q3

REPORT INFORMATION
  Report Type: Report from Study
  Country: EG (occurrence: EG)
  Receive Date: 20180803
  Receipt Date: 20180803
  Transmission Date: 20181010
  Serious: Yes (Other)
  Sender: FDA-Public Use
  Company Number: PHHY2018EG057367

PATIENT
  Age: 48 Year
  Sex: Male

DRUGS (4)
  1. GLIVEC [Suspect]
     Active Substance: IMATINIB MESYLATE
     Dosage: 800 MG, QD
     Route: 048
     Dates: start: 201805
  2. GLIVEC [Suspect]
     Active Substance: IMATINIB MESYLATE
     Indication: CHRONIC MYELOID LEUKAEMIA
     Dosage: 400 MG, QD
     Route: 048
     Dates: start: 2012, end: 2014
  3. TASIGNA [Suspect]
     Active Substance: NILOTINIB
     Indication: CHRONIC MYELOID LEUKAEMIA
     Dosage: 800 MG, QD
     Route: 048
     Dates: start: 2017, end: 201805
  4. SPRYCEL [Suspect]
     Active Substance: DASATINIB
     Indication: PRODUCT USED FOR UNKNOWN INDICATION
     Dosage: UNK
     Route: 065
     Dates: start: 2014, end: 2016

REACTIONS (9)
  - Inflammation [Recovering/Resolving]
  - Hypertension [Recovering/Resolving]
  - Dermatitis [Recovering/Resolving]
  - Muscle spasms [Recovering/Resolving]
  - Pulmonary oedema [Unknown]
  - Abdominal pain upper [Recovered/Resolved]
  - Polymerase chain reaction positive [Recovering/Resolving]
  - Vomiting [Recovered/Resolved]
  - Rash [Recovering/Resolving]
